FAERS Safety Report 5350807-1 (Version None)
Quarter: 2007Q2

REPORT INFORMATION
  Report Type: 
  Country: None (occurrence: None)
  Receive Date: 20070608
  Receipt Date: 20070530
  Transmission Date: 20071010
  Serious: Yes (Other)
  Sender: FDA-Public Use
  Company Number: AU-SANOFI-SYNTHELABO-A01200705827

PATIENT

DRUGS (3)
  1. ASPIRIN [Concomitant]
     Indication: CORONARY ARTERY BYPASS
     Dosage: UNK
     Route: 065
  2. CLEXANE [Suspect]
     Indication: CORONARY ARTERY BYPASS
     Dosage: UNK
     Route: 065
  3. PLAVIX [Suspect]
     Indication: CORONARY ARTERY BYPASS
     Dosage: UNK
     Route: 048

REACTIONS (1)
  - PULMONARY EMBOLISM [None]
